FAERS Safety Report 6203167-8 (Version None)
Quarter: 2009Q2

REPORT INFORMATION
  Report Type: 
  Country: None (occurrence: None)
  Receive Date: 20090521
  Receipt Date: 20090511
  Transmission Date: 20091009
  Serious: Yes (Hospitalization)
  Sender: FDA-Public Use
  Company Number: 2009EU001489

PATIENT
  Age: 24 Year
  Sex: Female

DRUGS (1)
  1. PROTOPIC [Suspect]
     Indication: ECZEMA
     Dosage: 0.1% PM, TOPICAL
     Route: 061
     Dates: start: 20060901, end: 20090301

REACTIONS (4)
  - GINGIVITIS [None]
  - INFECTION [None]
  - LYMPHADENOPATHY [None]
  - SALIVARY GLAND CYST [None]
